FAERS Safety Report 10155069 (Version 1)
Quarter: 2014Q2

REPORT INFORMATION
  Report Type: Spontaneous
  Country: CN (occurrence: None)
  Receive Date: 20140505
  Receipt Date: 20140505
  Transmission Date: 20141212
  Serious: No
  Sender: FDA-Public Use
  Company Number: None

PATIENT
  Age: 30 Year
  Sex: Female
  Weight: 53 kg

DRUGS (1)
  1. CEFIXIME [Suspect]
     Indication: CYSTITIS
     Dosage: 1 PILL TWICE DAILY TAKEN BY MOUTH
     Dates: start: 20140504, end: 20140504

REACTIONS (2)
  - Muscle spasms [None]
  - Pain [None]
